FAERS Safety Report 9965691 (Version 1)
Quarter: 2014Q1

REPORT INFORMATION
  Report Type: Report from Study
  Country: US (occurrence: US)
  Receive Date: 20140305
  Receipt Date: 20140305
  Transmission Date: 20141002
  Serious: No
  Sender: FDA-Public Use
  Company Number: US-ABBVIE-13P-163-1124539-00

PATIENT
  Age: 47 Year
  Sex: Female

DRUGS (2)
  1. HUMIRA [Suspect]
     Indication: CROHN^S DISEASE
     Dates: start: 20130218, end: 201307
  2. HUMIRA [Suspect]
     Dosage: SECOND LOADING DOSE

REACTIONS (29)
  - Fatigue [Not Recovered/Not Resolved]
  - Drug ineffective [Not Recovered/Not Resolved]
  - Diarrhoea [Not Recovered/Not Resolved]
  - Arthralgia [Not Recovered/Not Resolved]
  - Back pain [Not Recovered/Not Resolved]
  - Pelvic pain [Not Recovered/Not Resolved]
  - Abdominal pain [Not Recovered/Not Resolved]
  - Abdominal distension [Not Recovered/Not Resolved]
  - Memory impairment [Not Recovered/Not Resolved]
  - Tongue discolouration [Unknown]
  - Hyperhidrosis [Unknown]
  - Dehydration [Unknown]
  - Insomnia [Unknown]
  - Mental impairment [Not Recovered/Not Resolved]
  - Malaise [Unknown]
  - Pyrexia [Unknown]
  - Skin reaction [Unknown]
  - Dry skin [Unknown]
  - Tongue coated [Not Recovered/Not Resolved]
  - Stomatitis [Not Recovered/Not Resolved]
  - Stomatitis [Unknown]
  - Oral disorder [Unknown]
  - Stomatitis [Not Recovered/Not Resolved]
  - Oral disorder [Not Recovered/Not Resolved]
  - Tongue discolouration [Not Recovered/Not Resolved]
  - Fatigue [Unknown]
  - Insomnia [Unknown]
  - Tongue coated [Unknown]
  - Tongue coated [Unknown]
